FAERS Safety Report 9669194 (Version 2)
Quarter: 2013Q4

REPORT INFORMATION
  Report Type: Spontaneous
  Country: CN (occurrence: CN)
  Receive Date: 20131105
  Receipt Date: 20131105
  Transmission Date: 20140711
  Serious: Yes (Other)
  Sender: FDA-Public Use
  Company Number: PHHY2012CN056445

PATIENT
  Age: 26 Year
  Sex: Female

DRUGS (2)
  1. SEBIVO [Suspect]
     Indication: HEPATITIS B
     Dosage: 1 DF, QD
     Route: 048
     Dates: start: 201103
  2. SEBIVO [Suspect]
     Dosage: 600 MG, QD
     Route: 048
     Dates: start: 20120312, end: 20120712

REACTIONS (5)
  - Blood creatinine decreased [Unknown]
  - Blood creatine phosphokinase increased [Unknown]
  - Disease progression [Unknown]
  - Hepatitis B [Unknown]
  - Liver function test abnormal [Unknown]
